FAERS Safety Report 17661503 (Version 1)
Quarter: 2020Q2

REPORT INFORMATION
  Report Type: Spontaneous
  Country: US (occurrence: US)
  Receive Date: 20200413
  Receipt Date: 20200413
  Transmission Date: 20200713
  Serious: Yes (Hospitalization)
  Sender: FDA-Public Use
  Company Number: None

PATIENT
  Age: 82 Year
  Sex: Male
  Weight: 95.4 kg

DRUGS (13)
  1. CARVEDILOL 25 MG [Concomitant]
     Active Substance: CARVEDILOL
  2. CLOPIDOGREL [Concomitant]
     Active Substance: CLOPIDOGREL BISULFATE
  3. COLCHICINE 0.6 MG [Concomitant]
  4. FUROSEMIDE 40MG [Concomitant]
     Active Substance: FUROSEMIDE
  5. PANTOPRAZOLE 40 MG [Concomitant]
     Active Substance: PANTOPRAZOLE SODIUM
  6. ATOVASTATIN 20MG [Concomitant]
  7. LISINOPRIL 2.5 MG [Concomitant]
  8. ACYCLOVIR 400MG [Concomitant]
     Active Substance: ACYCLOVIR
  9. ALPRAZOLAM 0.25 MG [Concomitant]
     Active Substance: ALPRAZOLAM
  10. CYCLOPHOSPHAMIDE. [Suspect]
     Active Substance: CYCLOPHOSPHAMIDE
     Indication: PLASMA CELL MYELOMA
     Dosage: ?          OTHER FREQUENCY:ONCE WEEKLY;?
     Route: 048
     Dates: start: 20200106
  11. GABAPENTIN 400MG [Concomitant]
     Active Substance: GABAPENTIN
  12. POTASSIUM CHLORIDE 20MEQ [Concomitant]
     Active Substance: POTASSIUM CHLORIDE
  13. PROCHLORPERAZINE 10MG [Concomitant]

REACTIONS (3)
  - Cellulitis [None]
  - Gait disturbance [None]
  - Pyrexia [None]

NARRATIVE: CASE EVENT DATE: 20200302
